FAERS Safety Report 24203410 (Version 2)
Quarter: 2024Q3

REPORT INFORMATION
  Report Type: Report from Study
  Country: US (occurrence: US)
  Receive Date: 20240813
  Receipt Date: 20240815
  Transmission Date: 20241017
  Serious: Yes (Hospitalization, Other)
  Sender: ABBVIE
  Company Number: US-ABBVIE-5872598

PATIENT
  Age: 70 Year
  Sex: Male

DRUGS (1)
  1. HUMIRA [Suspect]
     Active Substance: ADALIMUMAB
     Indication: Psoriatic arthropathy
     Dosage: CITRATE FREE
     Route: 058
     Dates: start: 20230805, end: 2024

REACTIONS (3)
  - Cerebral haemorrhage [Recovering/Resolving]
  - Prosthetic valve endocarditis [Unknown]
  - Blood viscosity decreased [Unknown]

NARRATIVE: CASE EVENT DATE: 20240724
